FAERS Safety Report 15677390 (Version 3)
Quarter: 2019Q2

REPORT INFORMATION
  Report Type: Report from Study
  Country: DE (occurrence: DE)
  Receive Date: 20181130
  Receipt Date: 20190411
  Transmission Date: 20190711
  Serious: Yes (Other)
  Sender: FDA-Public Use
  Company Number: DE-BIOGEN-2018BI00664222

PATIENT
  Age: 31 Year
  Sex: Female

DRUGS (2)
  1. DICLOPHENAC [Concomitant]
     Active Substance: DICLOFENAC SODIUM
     Indication: INFLUENZA LIKE ILLNESS
     Route: 065
     Dates: start: 2018
  2. PLEGRIDY [Suspect]
     Active Substance: PEGINTERFERON BETA-1A
     Indication: MULTIPLE SCLEROSIS
     Route: 050
     Dates: start: 20180606

REACTIONS (1)
  - Cervix carcinoma [Unknown]

NARRATIVE: CASE EVENT DATE: 201811
